FAERS Safety Report 9462706 (Version 1)
Quarter: 2013Q3

REPORT INFORMATION
  Report Type: Spontaneous
  Country: US (occurrence: None)
  Receive Date: 20130814
  Receipt Date: 20130814
  Transmission Date: 20140515
  Serious: Yes (Death, Other)
  Sender: FDA-Public Use
  Company Number: 1833064

PATIENT
  Age: 69 Year
  Sex: Male

DRUGS (1)
  1. DILTIAZEM HCL [Suspect]
     Route: 042
     Dates: start: 20130717, end: 20130717

REACTIONS (8)
  - Pulmonary embolism [None]
  - Myocardial ischaemia [None]
  - Unresponsive to stimuli [None]
  - Pulseless electrical activity [None]
  - Ventricular arrhythmia [None]
  - Cardio-respiratory arrest [None]
  - Pupil fixed [None]
  - Pulse absent [None]
